FAERS Safety Report 7939222-1 (Version None)
Quarter: 2011Q4

REPORT INFORMATION
  Report Type: 
  Country: None (occurrence: None)
  Receive Date: 20111124
  Receipt Date: 20111116
  Transmission Date: 20120403
  Serious: Yes (Death, Life-Threatening, Other)
  Sender: FDA-Public Use
  Company Number: JP-AMGEN-JPNCT2011062194

PATIENT
  Age: 52 Year
  Sex: Male

DRUGS (2)
  1. IRINOTECAN HYDROCHLORIDE [Concomitant]
     Indication: SIGNET-RING CELL CARCINOMA
     Dosage: UNK
     Route: 041
  2. PANITUMUMAB [Suspect]
     Indication: SIGNET-RING CELL CARCINOMA
     Dosage: UNK UNK, Q2WK
     Route: 041

REACTIONS (5)
  - PYREXIA [None]
  - CHILLS [None]
  - SHOCK [None]
  - INFECTIOUS PERITONITIS [None]
  - FEBRILE NEUTROPENIA [None]
